FAERS Safety Report 6445706-8 (Version None)
Quarter: 2009Q4

REPORT INFORMATION
  Report Type: 
  Country: None (occurrence: None)
  Receive Date: 20091118
  Receipt Date: 20091118
  Transmission Date: 20100525
  Serious: Yes (Hospitalization)
  Sender: FDA-Public Use
  Company Number: None

PATIENT
  Age: 20 Year
  Sex: Female
  Weight: 58.52 kg

DRUGS (1)
  1. ZOLPIDEM [Suspect]
     Indication: INSOMNIA
     Dosage: 10 MG AT BEDTIME PO
     Route: 048
     Dates: start: 20091105, end: 20091116

REACTIONS (5)
  - INCORRECT DOSE ADMINISTERED [None]
  - INSOMNIA [None]
  - LETHARGY [None]
  - SEDATION [None]
  - SPEECH DISORDER [None]
